FAERS Safety Report 16378730 (Version 2)
Quarter: 2019Q2

REPORT INFORMATION
  Report Type: Spontaneous
  Country: JP (occurrence: JP)
  Receive Date: 20190531
  Receipt Date: 20190628
  Transmission Date: 20190711
  Serious: Yes (Other)
  Sender: FDA-Public Use
  Company Number: JP-BAYER-2019-101240

PATIENT
  Age: 8 Decade
  Sex: Female

DRUGS (2)
  1. NEXAVAR [Suspect]
     Active Substance: SORAFENIB
     Indication: HEPATOCELLULAR CARCINOMA
     Dosage: 200 MG, BID
     Route: 048
     Dates: start: 201905, end: 201905
  2. RIFXIMA [Concomitant]
     Active Substance: RIFAXIMIN
     Indication: HYPERAMMONAEMIA
     Dosage: UNK
     Dates: start: 20180729

REACTIONS (7)
  - Somnolence [Recovering/Resolving]
  - Abnormal behaviour [Recovering/Resolving]
  - Altered state of consciousness [Recovering/Resolving]
  - Hepatic encephalopathy [Recovering/Resolving]
  - Asterixis [Recovering/Resolving]
  - Cerebellar haemorrhage [None]
  - Cerebral infarction [None]

NARRATIVE: CASE EVENT DATE: 201905
